FAERS Safety Report 8067037-5 (Version None)
Quarter: 2012Q1

REPORT INFORMATION
  Report Type: 
  Country: None (occurrence: None)
  Receive Date: 20120124
  Receipt Date: 20120113
  Transmission Date: 20120608
  Serious: Yes (Other)
  Sender: FDA-Public Use
  Company Number: ES-ROCHE-1032324

PATIENT
  Age: 27 Year
  Sex: Female

DRUGS (2)
  1. RILAST [Concomitant]
  2. XOLAIR [Suspect]
     Indication: ASTHMA
     Route: 058
     Dates: start: 20090416, end: 20111229

REACTIONS (2)
  - BRONCHOSPASM [None]
  - MATERNAL EXPOSURE DURING PREGNANCY [None]
